FAERS Safety Report 15637720 (Version 1)
Quarter: 2018Q4

REPORT INFORMATION
  Report Type: Spontaneous
  Country: US (occurrence: US)
  Receive Date: 20181120
  Receipt Date: 20181120
  Transmission Date: 20190205
  Serious: No
  Sender: FDA-Public Use
  Company Number: US-JNJFOC-20180621396

PATIENT
  Age: 73 Year
  Sex: Female
  Weight: 50 kg

DRUGS (11)
  1. VALSARTAN. [Concomitant]
     Active Substance: VALSARTAN
  2. IMBRUVICA [Concomitant]
     Active Substance: IBRUTINIB
     Indication: NODULAR LYMPHOCYTE PREDOMINANT HODGKIN LYMPHOMA
  3. MULTIVITAMIN                       /00097801/ [Concomitant]
     Active Substance: VITAMINS
  4. FUROSEMIDE. [Concomitant]
     Active Substance: FUROSEMIDE
  5. LORAZEPAM. [Concomitant]
     Active Substance: LORAZEPAM
  6. ROSUVASTATIN. [Concomitant]
     Active Substance: ROSUVASTATIN
  7. VITAMIN D3 [Concomitant]
     Active Substance: CHOLECALCIFEROL
  8. ALLEGRA [Concomitant]
     Active Substance: FEXOFENADINE HYDROCHLORIDE
  9. IMBRUVICA [Suspect]
     Active Substance: IBRUTINIB
     Indication: NODULAR LYMPHOCYTE PREDOMINANT HODGKIN LYMPHOMA
     Route: 048
     Dates: start: 201805
  10. CARVEDILOL. [Concomitant]
     Active Substance: CARVEDILOL
  11. MAGNESIUM [Concomitant]
     Active Substance: MAGNESIUM

REACTIONS (1)
  - Pruritus [Unknown]

NARRATIVE: CASE EVENT DATE: 201805
